FAERS Safety Report 17340097 (Version 1)
Quarter: 2020Q1

REPORT INFORMATION
  Report Type: Spontaneous
  Country: US (occurrence: US)
  Receive Date: 20200129
  Receipt Date: 20200129
  Transmission Date: 20200409
  Serious: No
  Sender: FDA-Public Use
  Company Number: US-LANNETT COMPANY, INC.-US-2019LAN001166

PATIENT
  Sex: Male

DRUGS (2)
  1. RANITIDINE HYDROCHLORIDE. [Suspect]
     Active Substance: RANITIDINE HYDROCHLORIDE
     Indication: REFLUX GASTRITIS
     Dosage: 1.5 ML, BID
     Route: 048
     Dates: start: 201808, end: 2019
  2. RANITIDINE HYDROCHLORIDE. [Suspect]
     Active Substance: RANITIDINE HYDROCHLORIDE
     Dosage: 4-5 MLS A DAY - SPLIT IN 2 DOSES
     Route: 048
     Dates: start: 2019, end: 2019

REACTIONS (5)
  - Developmental delay [Recovered/Resolved]
  - Lactose intolerance [Recovered/Resolved]
  - Gastrointestinal infection [Recovered/Resolved]
  - Weight decreased [Recovered/Resolved]
  - Vomiting projectile [Recovered/Resolved]

NARRATIVE: CASE EVENT DATE: 2019
